FAERS Safety Report 5593219-8 (Version None)
Quarter: 2008Q1

REPORT INFORMATION
  Report Type: 
  Country: None (occurrence: None)
  Receive Date: 20080115
  Receipt Date: 20080115
  Transmission Date: 20080703
  Serious: Yes (Other)
  Sender: FDA-Public Use
  Company Number: None

PATIENT
  Sex: Female
  Weight: 56.6996 kg

DRUGS (1)
  1. BONIVA [Suspect]
     Indication: OSTEOPOROSIS
     Dosage: 1 PILL  PO
     Route: 048
     Dates: start: 20070301, end: 20070401

REACTIONS (3)
  - BONE PAIN [None]
  - MYALGIA [None]
  - PAIN [None]
